FAERS Safety Report 7390556-1 (Version None)
Quarter: 2011Q2

REPORT INFORMATION
  Report Type: 
  Country: None (occurrence: None)
  Receive Date: 20110404
  Receipt Date: 20110323
  Transmission Date: 20111010
  Serious: Yes (Hospitalization, Other)
  Sender: FDA-Public Use
  Company Number: US-BIOGENIDEC-2010BI017049

PATIENT
  Sex: Female

DRUGS (7)
  1. AMANTADINE HCL [Concomitant]
     Indication: IMMUNE SYSTEM DISORDER
  2. MIDAZOLAM [Concomitant]
     Indication: CONVULSION
  3. LAMICTAL [Concomitant]
     Indication: CONVULSION
     Dates: start: 20040101
  4. LORAZEPAM [Concomitant]
     Indication: SEDATIVE THERAPY
  5. DIASTAT [Concomitant]
     Indication: CONVULSION
     Route: 054
  6. TYSABRI [Suspect]
     Indication: MULTIPLE SCLEROSIS
     Route: 042
     Dates: start: 20090716
  7. KEPPRA [Concomitant]
     Indication: CONVULSION
     Dates: start: 20040101

REACTIONS (9)
  - DRY MOUTH [None]
  - MOBILITY DECREASED [None]
  - DISORIENTATION [None]
  - SLEEP DISORDER [None]
  - CONVULSION [None]
  - URINARY TRACT INFECTION [None]
  - MUSCULOSKELETAL STIFFNESS [None]
  - POSTURE ABNORMAL [None]
  - COGNITIVE DISORDER [None]
